FAERS Safety Report 8871899 (Version 1)
Quarter: 2012Q4

REPORT INFORMATION
  Report Type: 
  Country: US (occurrence: US)
  Receive Date: 20121026
  Receipt Date: 20121026
  Transmission Date: 20130627
  Serious: Yes (Hospitalization, Other)
  Sender: FDA-Public Use
  Company Number: US-AMGEN-USASP2012048931

PATIENT
  Age: 38 Year
  Sex: Male
  Weight: 86.17 kg

DRUGS (7)
  1. ENBREL [Suspect]
     Indication: ANKYLOSING SPONDYLITIS
     Dosage: 50 mg, qwk
     Route: 058
  2. XANAX [Concomitant]
     Dosage: 1 mg, UNK
  3. GABAPENTIN [Concomitant]
     Dosage: 100 mg, UNK
  4. RISPERIDONE [Concomitant]
     Dosage: 1 mg/ml, UNK
  5. NOVOLOG [Concomitant]
     Dosage: 100/ml UNK, UNK
  6. CELEXA                             /00582602/ [Concomitant]
     Dosage: 10 mg, UNK
  7. ADVIL                              /00044201/ [Concomitant]
     Dosage: 200 mg, UNK

REACTIONS (4)
  - Pharyngitis streptococcal [Unknown]
  - Abdominal pain upper [Unknown]
  - Constipation [Unknown]
  - Diarrhoea [Unknown]
